FAERS Safety Report 11842355 (Version 1)
Quarter: 2015Q4

REPORT INFORMATION
  Report Type: Spontaneous
  Country: US (occurrence: US)
  Receive Date: 20151216
  Receipt Date: 20151216
  Transmission Date: 20160305
  Serious: Yes (Death)
  Sender: FDA-Public Use
  Company Number: US-TAIHO ONCOLOGY INC-EU-2015-00219

PATIENT
  Age: 51 Year
  Sex: Male
  Weight: 71.28 kg

DRUGS (12)
  1. LONSURF [Suspect]
     Active Substance: TIPIRACIL HYDROCHLORIDE\TRIFLURIDINE
     Indication: COLON CANCER
     Dosage: CYCLE 1
     Route: 048
     Dates: start: 201510
  2. PEPCID [Concomitant]
     Active Substance: FAMOTIDINE
     Dosage: NI
  3. ZOFRAN [Concomitant]
     Active Substance: ONDANSETRON HYDROCHLORIDE
     Dosage: NI
  4. CYMBALTA [Concomitant]
     Active Substance: DULOXETINE HYDROCHLORIDE
     Dosage: NI
  5. COMPAZINE [Concomitant]
     Active Substance: PROCHLORPERAZINE MALEATE
     Dosage: NI
  6. MORPHINE [Concomitant]
     Active Substance: MORPHINE
     Dosage: NI
  7. LYRICA [Concomitant]
     Active Substance: PREGABALIN
     Dosage: NI
  8. DECADRON [Concomitant]
     Active Substance: DEXAMETHASONE
     Dosage: NI
  9. SALBUTAMOL [Concomitant]
     Active Substance: ALBUTEROL
     Dosage: NI
  10. ATIVAN [Concomitant]
     Active Substance: LORAZEPAM
     Dosage: NI
  11. DILAUDID [Concomitant]
     Active Substance: HYDROMORPHONE HYDROCHLORIDE
     Dosage: NI
  12. LONSURF [Suspect]
     Active Substance: TIPIRACIL HYDROCHLORIDE\TRIFLURIDINE
     Indication: METASTASES TO LIVER

REACTIONS (3)
  - Malaise [Unknown]
  - Death [Fatal]
  - Overdose [Unknown]

NARRATIVE: CASE EVENT DATE: 20151116
